FAERS Safety Report 9562591 (Version 1)
Quarter: 2013Q3

REPORT INFORMATION
  Report Type: Spontaneous
  Country: US (occurrence: US)
  Receive Date: 20130927
  Receipt Date: 20130927
  Transmission Date: 20140515
  Serious: No
  Sender: FDA-Public Use
  Company Number: US-TEVA-434606USA

PATIENT
  Age: 40 Year
  Sex: Female
  Weight: 68.1 kg

DRUGS (2)
  1. PARAGARD 380A [Suspect]
     Indication: CONTRACEPTION
     Route: 015
     Dates: start: 20120606, end: 201308
  2. TYROS [Concomitant]

REACTIONS (8)
  - Metrorrhagia [Recovered/Resolved]
  - Vaginal discharge [Recovered/Resolved]
  - Infection [Recovered/Resolved]
  - Complication of device removal [Recovered/Resolved]
  - Medical device complication [Recovered/Resolved]
  - Menstruation delayed [Not Recovered/Not Resolved]
  - Dyspareunia [Recovered/Resolved]
  - Pain [Recovered/Resolved]
